FAERS Safety Report 8586191-X (Version None)
Quarter: 2012Q3

REPORT INFORMATION
  Report Type: 
  Country: None (occurrence: None)
  Receive Date: 20120810
  Receipt Date: 20120806
  Transmission Date: 20120928
  Serious: Yes (Hospitalization, Other)
  Sender: FDA-Public Use
  Company Number: KE-GLAXOSMITHKLINE-B0821150A

PATIENT
  Age: 2 Year
  Sex: Male
  Weight: 10 kg

DRUGS (1)
  1. CEFUROXIME AXETIL [Suspect]
     Indication: RESPIRATORY TRACT INFECTION
     Route: 065

REACTIONS (3)
  - DRUG INEFFECTIVE [None]
  - MALAISE [None]
  - PYREXIA [None]
